FAERS Safety Report 10951296 (Version 1)
Quarter: 2015Q1

REPORT INFORMATION
  Report Type: Spontaneous
  Country: US (occurrence: None)
  Receive Date: 20150226
  Receipt Date: 20150226
  Transmission Date: 20150721
  Serious: Yes (Other)
  Sender: FDA-Public Use
  Company Number: PHEH2014US017019

PATIENT
  Age: 27 Year
  Sex: Female

DRUGS (4)
  1. PHENOBARBITAL. [Concomitant]
     Active Substance: PHENOBARBITAL
  2. TEGRETOL [Suspect]
     Active Substance: CARBAMAZEPINE
     Indication: EPILEPSY
     Dosage: 1400 MG, DAILY (400 MG BID MORNING AND 600 MG EVENING), ORAL
     Route: 048
     Dates: start: 2006
  3. DAILY MULTIVITAMIN (VITAMINS) [Concomitant]
  4. FOLIC ACID. [Concomitant]
     Active Substance: FOLIC ACID

REACTIONS (2)
  - Generalised tonic-clonic seizure [None]
  - Anticonvulsant drug level decreased [None]

NARRATIVE: CASE EVENT DATE: 20140822
